FAERS Safety Report 7668895-6 (Version None)
Quarter: 2011Q3

REPORT INFORMATION
  Report Type: 
  Country: None (occurrence: None)
  Receive Date: 20110803
  Receipt Date: 20110721
  Transmission Date: 20111222
  Serious: Yes (Other)
  Sender: FDA-Public Use
  Company Number: PL-1187267

PATIENT
  Sex: Male

DRUGS (3)
  1. XYZAL [Concomitant]
  2. PREDNISOLONUM [Concomitant]
  3. ALOMIDE [Suspect]
     Dosage: OPHTHALMIC
     Route: 047

REACTIONS (5)
  - VISUAL ACUITY REDUCED [None]
  - VERTIGO [None]
  - VISION BLURRED [None]
  - DISTURBANCE IN ATTENTION [None]
  - IMPAIRED DRIVING ABILITY [None]
